FAERS Safety Report 24276963 (Version 1)
Quarter: 2024Q3

REPORT INFORMATION
  Report Type: Report from Study
  Country: CA (occurrence: CA)
  Receive Date: 20240903
  Receipt Date: 20240903
  Transmission Date: 20241016
  Serious: Yes (Hospitalization, Other)
  Sender: TAKEDA
  Company Number: CA-TAKEDA-2024TUS024198

PATIENT
  Sex: Female

DRUGS (2)
  1. VEDOLIZUMAB [Suspect]
     Active Substance: VEDOLIZUMAB
     Indication: Colitis ulcerative
     Dosage: 300 MILLIGRAM
     Route: 042
     Dates: start: 20221109
  2. Salofalk [Concomitant]
     Dosage: UNK
     Dates: start: 202011

REACTIONS (5)
  - Pre-eclampsia [Recovering/Resolving]
  - HELLP syndrome [Recovering/Resolving]
  - Renal impairment [Recovering/Resolving]
  - Pregnancy [Recovered/Resolved]
  - Maternal exposure during breast feeding [Unknown]
